FAERS Safety Report 11786313 (Version 2)
Quarter: 2016Q1

REPORT INFORMATION
  Report Type: Report from Study
  Country: FR (occurrence: FR)
  Receive Date: 20151130
  Receipt Date: 20160125
  Transmission Date: 20160525
  Serious: Yes (Other)
  Sender: FDA-Public Use
  Company Number: FR-JNJFOC-20150211089

PATIENT
  Age: 25 Year
  Sex: Male
  Weight: 52 kg

DRUGS (34)
  1. FORLAX [Concomitant]
     Active Substance: POLYETHYLENE GLYCOL 4000
     Route: 065
  2. ZYVOXID [Concomitant]
     Active Substance: LINEZOLID
     Indication: TUBERCULOSIS
     Route: 048
     Dates: start: 20140825
  3. PASER [Concomitant]
     Active Substance: AMINOSALICYLIC ACID
     Indication: TUBERCULOSIS
     Route: 065
  4. LOVENOX [Concomitant]
     Active Substance: ENOXAPARIN SODIUM
     Route: 065
  5. ZOLPIDEM [Concomitant]
     Active Substance: ZOLPIDEM\ZOLPIDEM TARTRATE
     Route: 048
  6. ACID TRANEXAMIC [Concomitant]
     Route: 048
  7. DIFFU K [Concomitant]
     Active Substance: POTASSIUM CHLORIDE
     Route: 048
  8. OXYCONTIN [Concomitant]
     Active Substance: OXYCODONE HYDROCHLORIDE
     Route: 065
  9. OXYNORM [Concomitant]
     Active Substance: OXYCODONE HYDROCHLORIDE
     Route: 065
  10. ACUPAN [Concomitant]
     Active Substance: NEFOPAM HYDROCHLORIDE
     Route: 065
  11. CYCLOSERINE. [Concomitant]
     Active Substance: CYCLOSERINE
     Indication: TUBERCULOSIS
     Route: 048
  12. STILNOX [Concomitant]
     Active Substance: ZOLPIDEM TARTRATE
     Route: 065
  13. INEXIUM [Concomitant]
     Active Substance: ESOMEPRAZOLE
     Route: 065
  14. LINEZOLID. [Concomitant]
     Active Substance: LINEZOLID
     Route: 048
  15. TMC207 [Suspect]
     Active Substance: BEDAQUILINE
     Indication: TUBERCULOSIS
     Route: 048
  16. SPECIAFOLDINE [Concomitant]
     Active Substance: FOLIC ACID
     Route: 065
  17. FRESUBIN [Concomitant]
     Active Substance: AMINO ACIDS\DEXTROSE\ELECTROLYTES NOS\SOYBEAN OIL\VITAMINS
     Route: 065
  18. AMIKACIN [Concomitant]
     Active Substance: AMIKACIN
     Route: 042
  19. CLOFAZIMINE [Concomitant]
     Active Substance: CLOFAZIMINE
     Route: 048
  20. TMC207 [Suspect]
     Active Substance: BEDAQUILINE
     Indication: TUBERCULOSIS
     Route: 048
     Dates: start: 20140925
  21. PARACETAMOL [Concomitant]
     Active Substance: ACETAMINOPHEN
     Route: 065
  22. VITAMIN C [Concomitant]
     Active Substance: ASCORBIC ACID
     Route: 065
  23. BECILAN [Concomitant]
     Active Substance: PYRIDOXINE
     Route: 065
  24. ESOMEPRAZOLE [Concomitant]
     Active Substance: ESOMEPRAZOLE
     Route: 048
  25. ACID TRANEXAMIC [Concomitant]
     Route: 048
  26. PYRIDOXINE [Concomitant]
     Active Substance: PYRIDOXINE
     Route: 048
  27. TMC207 [Suspect]
     Active Substance: BEDAQUILINE
     Indication: TUBERCULOSIS
     Route: 048
     Dates: start: 20140825
  28. CYCLOSERINE. [Concomitant]
     Active Substance: CYCLOSERINE
     Indication: TUBERCULOSIS
     Route: 048
  29. STILNOX [Concomitant]
     Active Substance: ZOLPIDEM TARTRATE
     Route: 048
  30. CYCLOSERINE. [Concomitant]
     Active Substance: CYCLOSERINE
     Indication: TUBERCULOSIS
     Dosage: 2 TABLETS 1 DAY/2
     Route: 048
     Dates: start: 20140825
  31. AMIKLIN [Concomitant]
     Active Substance: AMIKACIN SULFATE
     Indication: TUBERCULOSIS
     Route: 042
     Dates: start: 20140825
  32. AMIKLIN [Concomitant]
     Active Substance: AMIKACIN SULFATE
     Indication: TUBERCULOSIS
     Route: 042
  33. LAMPRENE [Concomitant]
     Active Substance: CLOFAZIMINE
     Indication: TUBERCULOSIS
     Route: 048
     Dates: start: 20140825
  34. PHLOROGLUCINOL [Concomitant]
     Active Substance: PHLOROGLUCINOL
     Dosage: IF NEED
     Route: 048

REACTIONS (7)
  - Aspartate aminotransferase increased [Recovered/Resolved]
  - Alanine aminotransferase increased [Recovered/Resolved]
  - Abdominal pain [Unknown]
  - Polyneuropathy [Unknown]
  - Electrocardiogram QT prolonged [Not Recovered/Not Resolved]
  - Tuberculosis [Unknown]
  - Off label use [Unknown]

NARRATIVE: CASE EVENT DATE: 20150205
